FAERS Safety Report 21697477 (Version 1)
Quarter: 2022Q4

REPORT INFORMATION
  Report Type: Report from Study
  Country: US (occurrence: US)
  Receive Date: 20221208
  Receipt Date: 20221208
  Transmission Date: 20230113
  Serious: No
  Sender: FDA-Public Use
  Company Number: US-ABBVIE-4226621

PATIENT
  Sex: Male

DRUGS (1)
  1. VENCLEXTA [Suspect]
     Active Substance: VENETOCLAX
     Indication: Chronic lymphocytic leukaemia
     Route: 048
     Dates: start: 202103

REACTIONS (6)
  - Oxygen saturation increased [Unknown]
  - Alopecia [Unknown]
  - Pruritus [Unknown]
  - Food allergy [Unknown]
  - Dyspnoea [Unknown]
  - Fatigue [Unknown]
